FAERS Safety Report 4401901-0 (Version None)
Quarter: 2004Q3

REPORT INFORMATION
  Report Type: 
  Country: None (occurrence: None)
  Receive Date: 20040714
  Receipt Date: 20040625
  Transmission Date: 20050211
  Serious: Yes (Hospitalization, Other)
  Sender: FDA-Public Use
  Company Number: USA040567430

PATIENT
  Age: 52 Year
  Sex: Female
  Weight: 105 kg

DRUGS (4)
  1. HUMALOG [Suspect]
     Indication: DIABETES MELLITUS
     Dates: start: 20040201
  2. LANTUS [Concomitant]
  3. METFORMIN HCL [Concomitant]
  4. CHROMIUM [Concomitant]

REACTIONS (6)
  - BLOOD GLUCOSE INCREASED [None]
  - GASTRIC DISORDER [None]
  - INJECTION SITE BURNING [None]
  - MARKEDLY REDUCED DIETARY INTAKE [None]
  - MIGRAINE [None]
  - PHARMACEUTICAL PRODUCT COMPLAINT [None]
